FAERS Safety Report 9689381 (Version 2)
Quarter: 2014Q1

REPORT INFORMATION
  Report Type: Spontaneous
  Country: FR (occurrence: FR)
  Receive Date: 20131114
  Receipt Date: 20140226
  Transmission Date: 20141002
  Serious: Yes (Other)
  Sender: FDA-Public Use
  Company Number: CHPA2013FR017179

PATIENT
  Age: 26 Year
  Sex: Male

DRUGS (1)
  1. NICOTINELL GUM [Suspect]
     Indication: SMOKING CESSATION THERAPY
     Dosage: UNK, UNK
     Route: 002

REACTIONS (2)
  - Pneumonia [Unknown]
  - Drug ineffective [Unknown]
